FAERS Safety Report 5714089-0 (Version None)
Quarter: 2008Q2

REPORT INFORMATION
  Report Type: 
  Country: None (occurrence: None)
  Receive Date: 20080423
  Receipt Date: 20080417
  Transmission Date: 20081010
  Serious: Yes (Other)
  Sender: FDA-Public Use
  Company Number: CH-BAYER-200718527GPV

PATIENT
  Age: 69 Year
  Sex: Female
  Weight: 80 kg

DRUGS (7)
  1. BETAFERON [Suspect]
     Indication: MULTIPLE SCLEROSIS
     Route: 058
     Dates: start: 20000101
  2. MARCOUMAR (PHENPROCOUMONUM) [Concomitant]
  3. AGIOLAX (PLANTAGINIS OVATAE SEMEN) [Concomitant]
  4. MIANSERINE 60 MG (MIANSERINI HYDROCHLORIDUM) [Concomitant]
  5. TEMESTA (LORAZEPAMUM). [Concomitant]
  6. CRANBERRY JUICE [Concomitant]
  7. VIT E 600 E [Concomitant]

REACTIONS (3)
  - ANGINA PECTORIS [None]
  - RESTLESSNESS [None]
  - TACHYCARDIA [None]
